FAERS Safety Report 12356330 (Version 1)
Quarter: 2016Q2

REPORT INFORMATION
  Report Type: Spontaneous
  Country: US (occurrence: US)
  Receive Date: 20160511
  Receipt Date: 20160511
  Transmission Date: 20160815
  Serious: No
  Sender: FDA-Public Use
  Company Number: PHHY2016US064727

PATIENT
  Age: 72 Year
  Sex: Female

DRUGS (1)
  1. VOLTAREN [Suspect]
     Active Substance: DICLOFENAC SODIUM
     Indication: PRODUCT USED FOR UNKNOWN INDICATION
     Dosage: 2 G, QD
     Route: 065

REACTIONS (6)
  - Urinary tract infection [Recovered/Resolved]
  - Dysuria [Unknown]
  - Expired product administered [Unknown]
  - Incorrect dose administered [Unknown]
  - Drug prescribing error [Unknown]
  - Pruritus [Recovered/Resolved]
